FAERS Safety Report 15283078 (Version 1)
Quarter: 2018Q3

REPORT INFORMATION
  Report Type: Spontaneous
  Country: DE (occurrence: DE)
  Receive Date: 20180816
  Receipt Date: 20180816
  Transmission Date: 20181010
  Serious: Yes (Disabling)
  Sender: FDA-Public Use
  Company Number: DE-009507513-1808DEU004933

PATIENT
  Sex: Male

DRUGS (1)
  1. KEYTRUDA [Suspect]
     Active Substance: PEMBROLIZUMAB
     Indication: NON-SMALL CELL LUNG CANCER
     Dosage: UNK
     Dates: start: 201805

REACTIONS (3)
  - Asthenia [Unknown]
  - Gait disturbance [Unknown]
  - Muscular weakness [Unknown]

NARRATIVE: CASE EVENT DATE: 201805
